FAERS Safety Report 20209531 (Version 1)
Quarter: 2021Q4

REPORT INFORMATION
  Report Type: Spontaneous
  Country: CA (occurrence: CA)
  Receive Date: 20211221
  Receipt Date: 20211221
  Transmission Date: 20220303
  Serious: Yes (Other)
  Sender: FDA-Public Use
  Company Number: CA-SA-SAC20211213000631

PATIENT
  Age: 42 Year
  Sex: Male
  Weight: 119 kg

DRUGS (14)
  1. LEFLUNOMIDE [Suspect]
     Active Substance: LEFLUNOMIDE
     Indication: Product used for unknown indication
     Dosage: UNK
  2. METHOTREXATE [Suspect]
     Active Substance: METHOTREXATE
     Indication: Product used for unknown indication
  3. MYCOPHENOLATE MOFETIL [Suspect]
     Active Substance: MYCOPHENOLATE MOFETIL
     Indication: Product used for unknown indication
     Dosage: 2 DF, QD
  4. ACITRETIN [Suspect]
     Active Substance: ACITRETIN
     Indication: Product used for unknown indication
     Dosage: 25 MG, QD
     Route: 048
  5. ADALIMUMAB [Suspect]
     Active Substance: ADALIMUMAB
     Indication: Product used for unknown indication
  6. CIMZIA [Suspect]
     Active Substance: CERTOLIZUMAB PEGOL
     Indication: Product used for unknown indication
  7. USTEKINUMAB [Suspect]
     Active Substance: USTEKINUMAB
     Indication: Product used for unknown indication
  8. NAPROXEN [Concomitant]
     Active Substance: NAPROXEN
     Dosage: 2 DF, QD
     Route: 048
  9. OMEPRAZOLE MAGNESIUM [Concomitant]
     Active Substance: OMEPRAZOLE MAGNESIUM
     Dosage: 2 DF, QD
     Route: 048
  10. OMEPRAZOLE SODIUM [Concomitant]
     Active Substance: OMEPRAZOLE SODIUM
  11. PERMETHRIN [Concomitant]
     Active Substance: PERMETHRIN
     Route: 061
  12. SULFASALAZINE [Concomitant]
     Active Substance: SULFASALAZINE
     Dosage: 2 DF, QD
     Route: 048
  13. CERTOLIZUMAB PEGOL [Concomitant]
     Active Substance: CERTOLIZUMAB PEGOL
     Dosage: 400 MG
     Route: 058
  14. MOMETASONE FUROATE;SALICYLIC ACID [Concomitant]
     Route: 061

REACTIONS (8)
  - Anal haemorrhage [Not Recovered/Not Resolved]
  - Gastrointestinal disorder [Not Recovered/Not Resolved]
  - Hidradenitis [Not Recovered/Not Resolved]
  - Psoriatic arthropathy [Not Recovered/Not Resolved]
  - Psoriasis [Not Recovered/Not Resolved]
  - Dry skin [Not Recovered/Not Resolved]
  - Diarrhoea [Not Recovered/Not Resolved]
  - Drug ineffective [Unknown]
